FAERS Safety Report 9171447 (Version 2)
Quarter: 2013Q1

REPORT INFORMATION
  Report Type: Spontaneous
  Country: JP (occurrence: JP)
  Receive Date: 20130319
  Receipt Date: 20130320
  Transmission Date: 20140127
  Serious: Yes (Hospitalization)
  Sender: FDA-Public Use
  Company Number: JP-ROCHE-1202597

PATIENT
  Age: 60 Year
  Sex: Male

DRUGS (3)
  1. RITUXIMAB [Suspect]
     Indication: PLASMA CELL MYELOMA
     Route: 065
     Dates: start: 2007
  2. RITUXIMAB [Suspect]
     Indication: B-CELL LYMPHOMA
     Route: 065
     Dates: start: 201210
  3. RITUXIMAB [Suspect]
     Route: 065
     Dates: start: 201211

REACTIONS (3)
  - Myocarditis [Recovering/Resolving]
  - Septic shock [Recovering/Resolving]
  - Disseminated intravascular coagulation [Recovering/Resolving]
